FAERS Safety Report 9191408 (Version 1)
Quarter: 2013Q1

REPORT INFORMATION
  Report Type: Spontaneous
  Country: US (occurrence: US)
  Receive Date: 20130326
  Receipt Date: 20130326
  Transmission Date: 20140127
  Serious: No
  Sender: FDA-Public Use
  Company Number: US-ASTRAZENECA-2013SE15642

PATIENT
  Age: 87 Year
  Sex: Female
  Weight: 68.9 kg

DRUGS (11)
  1. NEXIUM [Suspect]
     Indication: GASTROOESOPHAGEAL REFLUX DISEASE
     Route: 048
     Dates: start: 20130211
  2. TOPROL XL [Suspect]
     Route: 048
     Dates: start: 2011, end: 2012
  3. TOPROL XL [Suspect]
     Route: 048
     Dates: start: 2012
  4. ASPIRIN ENTERIC COATED [Concomitant]
     Indication: CARDIAC DISORDER
     Dates: start: 1992
  5. PLAVIX [Concomitant]
     Indication: CARDIAC DISORDER
  6. LIPITOR [Concomitant]
  7. NORVASC [Concomitant]
  8. PRAVACHOL [Concomitant]
     Indication: BLOOD CHOLESTEROL ABNORMAL
  9. SYNTHROID [Concomitant]
     Indication: HYPOTHYROIDISM
  10. IMDUR [Concomitant]
     Indication: ANGINA PECTORIS
     Dates: start: 2011
  11. VASOTEC [Concomitant]
     Indication: HYPERTENSION

REACTIONS (7)
  - Gastric disorder [Unknown]
  - Adverse event [Unknown]
  - Malaise [Unknown]
  - Gastrooesophageal reflux disease [Unknown]
  - Pigmentation disorder [Recovering/Resolving]
  - Haemorrhage [Unknown]
  - Abdominal pain upper [Unknown]
